FAERS Safety Report 4590186-0 (Version None)
Quarter: 2005Q1

REPORT INFORMATION
  Report Type: 
  Country: None (occurrence: None)
  Receive Date: 20050217
  Receipt Date: 20050203
  Transmission Date: 20050727
  Serious: Yes (Hospitalization)
  Sender: FDA-Public Use
  Company Number: 166735

PATIENT
  Age: 45 Year
  Sex: Male

DRUGS (2)
  1. AVONEX [Suspect]
     Indication: MULTIPLE SCLEROSIS
     Dosage: 30 UG; QW; IM
     Route: 030
     Dates: start: 19980201
  2. AVONEX [Suspect]
     Indication: MULTIPLE SCLEROSIS
     Dosage: 30 UG; QW

REACTIONS (5)
  - COMA [None]
  - GRAND MAL CONVULSION [None]
  - LUNG INFECTION [None]
  - PETIT MAL EPILEPSY [None]
  - RESPIRATORY ARREST [None]
